FAERS Safety Report 9103820 (Version 1)
Quarter: 2013Q1

REPORT INFORMATION
  Report Type: Spontaneous
  Country: IE (occurrence: IE)
  Receive Date: 20130219
  Receipt Date: 20130219
  Transmission Date: 20140127
  Serious: Yes (Hospitalization)
  Sender: FDA-Public Use
  Company Number: IE-CUBIST PHARMACEUTICAL, INC.-2013CBST000054

PATIENT
  Sex: 0

DRUGS (3)
  1. CUBICIN [Suspect]
     Indication: SOFT TISSUE INFECTION
     Dosage: 8 MG/KG, QD
     Route: 042
     Dates: start: 20130114
  2. CUBICIN [Suspect]
     Indication: OSTEOMYELITIS
     Dosage: 275 MG, UNK
     Dates: start: 20121218, end: 20130113
  3. CUBICIN [Suspect]
     Indication: OFF LABEL USE

REACTIONS (8)
  - Wheezing [Recovered/Resolved]
  - Dyspnoea [Recovered/Resolved]
  - Pyrexia [Recovered/Resolved]
  - Infusion related reaction [Recovered/Resolved]
  - Vomiting [Recovered/Resolved]
  - Nausea [Recovered/Resolved]
  - Chills [Recovered/Resolved]
  - Dizziness [Recovered/Resolved]
